FAERS Safety Report 4391169-6 (Version None)
Quarter: 2004Q3

REPORT INFORMATION
  Report Type: 
  Country: None (occurrence: None)
  Receive Date: 20040707
  Receipt Date: 20040623
  Transmission Date: 20050211
  Serious: Yes (Death, Other)
  Sender: FDA-Public Use
  Company Number: DE-MERCK-0406DEU00174

PATIENT
  Age: 13 Year
  Sex: Male

DRUGS (2)
  1. DISTEAROYLPHOSPHATIDYLGLYCEROL AND VITAMIN E AND AMPHOTERICIN B AND CH [Suspect]
     Indication: BRONCHOPULMONARY ASPERGILLOSIS
     Route: 065
  2. CANCIDAS [Suspect]
     Indication: BRONCHOPULMONARY ASPERGILLOSIS
     Route: 042

REACTIONS (2)
  - ACUTE RESPIRATORY DISTRESS SYNDROME [None]
  - THERAPY NON-RESPONDER [None]
